FAERS Safety Report 17685510 (Version 1)
Quarter: 2020Q2

REPORT INFORMATION
  Report Type: Spontaneous
  Country: US (occurrence: US)
  Receive Date: 20200420
  Receipt Date: 20200420
  Transmission Date: 20200714
  Serious: Yes (Hospitalization)
  Sender: FDA-Public Use
  Company Number: None

PATIENT
  Sex: Female

DRUGS (1)
  1. TACROLIMUS. [Suspect]
     Active Substance: TACROLIMUS
     Indication: LUNG TRANSPLANT
     Dosage: ?          OTHER FREQUENCY:3MG QAM / 2MG QPM;?
     Route: 048
     Dates: start: 20200219

REACTIONS (2)
  - Lung transplant [None]
  - Coronavirus infection [None]
